FAERS Safety Report 14928812 (Version 4)
Quarter: 2018Q2

REPORT INFORMATION
  Report Type: Spontaneous
  Country: US (occurrence: US)
  Receive Date: 20180523
  Receipt Date: 20180615
  Transmission Date: 20180711
  Serious: Yes (Hospitalization, Other)
  Sender: FDA-Public Use
  Company Number: US-PFIZER INC-2018206511

PATIENT
  Age: 80 Year
  Sex: Male
  Weight: 99.33 kg

DRUGS (3)
  1. GEMCITABINE HYDROCHLORIDE. [Suspect]
     Active Substance: GEMCITABINE HYDROCHLORIDE
     Dosage: UNK
     Dates: end: 20180412
  2. XELODA [Concomitant]
     Active Substance: CAPECITABINE
     Indication: PANCREATIC CARCINOMA
     Dosage: 1500 MG, 2X/DAY
     Route: 048
     Dates: start: 20180329, end: 20180416
  3. GEMCITABINE HYDROCHLORIDE. [Suspect]
     Active Substance: GEMCITABINE HYDROCHLORIDE
     Indication: PANCREATIC CARCINOMA
     Dosage: 1628 MG, CYCLIC (EVERY 28 DAYS)
     Route: 042
     Dates: start: 20180215, end: 20180426

REACTIONS (12)
  - Nausea [Recovering/Resolving]
  - Pleural effusion [Recovering/Resolving]
  - Pulmonary oedema [Unknown]
  - Malaise [Unknown]
  - Renal failure [Recovering/Resolving]
  - Diarrhoea [Recovering/Resolving]
  - Hypoxia [Unknown]
  - Atrial fibrillation [Recovering/Resolving]
  - Asthenia [Unknown]
  - Respiratory distress [Unknown]
  - Mental status changes [Unknown]
  - Lethargy [Unknown]

NARRATIVE: CASE EVENT DATE: 20180412
